FAERS Safety Report 18793851 (Version 1)
Quarter: 2021Q1

REPORT INFORMATION
  Report Type: Spontaneous
  Country: US (occurrence: US)
  Receive Date: 20210127
  Receipt Date: 20210127
  Transmission Date: 20210419
  Serious: Yes (Hospitalization)
  Sender: FDA-Public Use
  Company Number: None

PATIENT
  Sex: Female

DRUGS (16)
  1. XELJANZ XR [Suspect]
     Active Substance: TOFACITINIB CITRATE
     Indication: RHEUMATOID ARTHRITIS
     Route: 048
     Dates: start: 20160414
  2. FISH OIL [Concomitant]
     Active Substance: FISH OIL
  3. VICODIN [Concomitant]
     Active Substance: ACETAMINOPHEN\HYDROCODONE BITARTRATE
  4. VITAMIN D [Concomitant]
     Active Substance: VITAMIN D NOS
  5. TYLENOL [Concomitant]
     Active Substance: ACETAMINOPHEN
  6. CALCIFEROL [Concomitant]
     Dates: start: 20150326
  7. MELOXICAM. [Concomitant]
     Active Substance: MELOXICAM
  8. FOLIC ACID. [Concomitant]
     Active Substance: FOLIC ACID
  9. ATENOLOL. [Concomitant]
     Active Substance: ATENOLOL
     Dates: start: 20150326
  10. PHENTERMINE. [Concomitant]
     Active Substance: PHENTERMINE
  11. HYDROCO/APAP [Concomitant]
     Active Substance: ACETAMINOPHEN\HYDROCODONE
     Dates: start: 20150326
  12. PREDNISONE. [Concomitant]
     Active Substance: PREDNISONE
  13. METHOTREXATE. [Concomitant]
     Active Substance: METHOTREXATE
  14. TOPIRAMATE. [Concomitant]
     Active Substance: TOPIRAMATE
     Dates: start: 20150326
  15. PREMARIN [Concomitant]
     Active Substance: ESTROGENS, CONJUGATED
     Dates: start: 20150326
  16. PROCHLORPER INJ [Concomitant]
     Dates: start: 20150326

REACTIONS (1)
  - COVID-19 [None]
